FAERS Safety Report 6388170-X (Version None)
Quarter: 2009Q4

REPORT INFORMATION
  Report Type: 
  Country: None (occurrence: None)
  Receive Date: 20091005
  Receipt Date: 20090901
  Transmission Date: 20100525
  Serious: Yes (Other)
  Sender: FDA-Public Use
  Company Number: US-BAYER-200932056NA

PATIENT
  Sex: Female

DRUGS (1)
  1. MIRENA [Suspect]
     Indication: CONTRACEPTION
     Dosage: CONTINUOUS
     Route: 015

REACTIONS (4)
  - PELVIC INFECTION [None]
  - SUPRAPUBIC PAIN [None]
  - UTERINE CERVICAL PAIN [None]
  - VAGINAL DISCHARGE [None]
